FAERS Safety Report 8769380 (Version 3)
Quarter: 2014Q1

REPORT INFORMATION
  Report Type: Report from Study
  Country: SE (occurrence: SE)
  Receive Date: 20120904
  Receipt Date: 20140321
  Transmission Date: 20141002
  Serious: Yes (Hospitalization)
  Sender: FDA-Public Use
  Company Number: SE-TEVA-357212USA

PATIENT
  Age: 82 Year
  Sex: Female
  Weight: 59.1 kg

DRUGS (5)
  1. TREANDA [Suspect]
     Route: 042
     Dates: start: 20120319, end: 20120725
  2. RITUXIMAB [Suspect]
     Route: 042
     Dates: start: 20120319
  3. OMEPRAZOL [Concomitant]
  4. CYANOCOBALAMIN [Concomitant]
  5. FOLACIN [Concomitant]

REACTIONS (1)
  - Pancytopenia [Recovered/Resolved]
